FAERS Safety Report 5312678-9 (Version None)
Quarter: 2007Q2

REPORT INFORMATION
  Report Type: 
  Country: None (occurrence: None)
  Receive Date: 20070430
  Receipt Date: 20070129
  Transmission Date: 20071010
  Serious: No
  Sender: FDA-Public Use
  Company Number: 2007UW01786

PATIENT
  Age: 86 Year
  Sex: Male
  Weight: 70.3 kg

DRUGS (8)
  1. NEXIUM [Suspect]
     Indication: ULCER
     Route: 048
  2. ASPIRIN [Concomitant]
  3. NORVASC [Concomitant]
  4. ISORBIDE [Concomitant]
  5. ZOCOR [Concomitant]
  6. MOBIC [Concomitant]
  7. FLOMAX [Concomitant]
  8. CALCIUM CHLORIDE [Concomitant]

REACTIONS (3)
  - FOOT FRACTURE [None]
  - OSTEOPOROSIS [None]
  - PAIN IN EXTREMITY [None]
